FAERS Safety Report 19175923 (Version 6)
Quarter: 2021Q4

REPORT INFORMATION
  Report Type: Other
  Country: US (occurrence: None)
  Receive Date: 20210424
  Receipt Date: 20211111
  Transmission Date: 20220303
  Serious: Yes (Disabling, Other)
  Sender: FDA-Public Use
  Company Number: US-ROCHE-2815310

PATIENT
  Age: 40 Year
  Sex: Male
  Weight: 61.290 kg

DRUGS (5)
  1. OCREVUS [Suspect]
     Active Substance: OCRELIZUMAB
     Indication: Relapsing multiple sclerosis
     Route: 042
     Dates: start: 20200311
  2. OCREVUS [Suspect]
     Active Substance: OCRELIZUMAB
     Indication: Nervous system disorder
  3. INDERAL [Concomitant]
     Active Substance: PROPRANOLOL HYDROCHLORIDE
  4. COGENTIN [Concomitant]
     Active Substance: BENZTROPINE MESYLATE
     Route: 048
     Dates: start: 20191114
  5. LEXAPRO [Concomitant]
     Active Substance: ESCITALOPRAM OXALATE
     Route: 048
     Dates: start: 20191031

REACTIONS (4)
  - Multiple sclerosis relapse [Not Recovered/Not Resolved]
  - COVID-19 [Recovered/Resolved]
  - Nasal congestion [Recovered/Resolved]
  - Gait disturbance [Not Recovered/Not Resolved]

NARRATIVE: CASE EVENT DATE: 20210201
